FAERS Safety Report 20532544 (Version 1)
Quarter: 2022Q1

REPORT INFORMATION
  Report Type: Spontaneous
  Country: US (occurrence: None)
  Receive Date: 20220228
  Receipt Date: 20220228
  Transmission Date: 20220423
  Serious: Yes (Death)
  Sender: FDA-Public Use
  Company Number: None

PATIENT
  Age: 52 Year
  Sex: Female
  Weight: 47.25 kg

DRUGS (12)
  1. PREDNISONE [Suspect]
     Active Substance: PREDNISONE
     Indication: Bronchitis
  2. PREDNISOLONE [Suspect]
     Active Substance: PREDNISOLONE
  3. monalukast [Concomitant]
  4. PROGESTERONE [Concomitant]
     Active Substance: PROGESTERONE
  5. FLUTICASONE [Concomitant]
     Active Substance: FLUTICASONE
  6. FLOVENT [Concomitant]
     Active Substance: FLUTICASONE PROPIONATE
  7. ALBUTEROL [Concomitant]
     Active Substance: ALBUTEROL
  8. VITAMIN C [Concomitant]
     Active Substance: ASCORBIC ACID
  9. VITAMIN D [Concomitant]
     Active Substance: VITAMIN D NOS
  10. VITAMIN B12 [Concomitant]
     Active Substance: CYANOCOBALAMIN
  11. PRASTERONE [Concomitant]
     Active Substance: PRASTERONE
  12. generic allergy med [Concomitant]

REACTIONS (11)
  - Therapy non-responder [None]
  - Substance-induced psychotic disorder [None]
  - Completed suicide [None]
  - Overdose [None]
  - Bronchitis [None]
  - Anxiety [None]
  - Dyspnoea [None]
  - Job dissatisfaction [None]
  - Anger [None]
  - Anger [None]
  - Mental disorder [None]

NARRATIVE: CASE EVENT DATE: 20190203
